FAERS Safety Report 6277992-1 (Version None)
Quarter: 2009Q3

REPORT INFORMATION
  Report Type: 
  Country: None (occurrence: None)
  Receive Date: 20090722
  Receipt Date: 20090717
  Transmission Date: 20100115
  Serious: Yes (Death, Hospitalization, Other)
  Sender: FDA-Public Use
  Company Number: DE-BRISTOL-MYERS SQUIBB COMPANY-14675045

PATIENT
  Age: 58 Year
  Sex: Male
  Weight: 67 kg

DRUGS (3)
  1. CETUXIMAB [Suspect]
     Indication: GASTROOESOPHAGEAL CANCER
     Dosage: CETUXIMAB 5MG/ML(INTRAVENOUS INFUSION);RECENT INF BEFORE EVENT ON 10JUN09;
     Route: 042
     Dates: start: 20090603
  2. CISPLATIN [Suspect]
     Indication: GASTROOESOPHAGEAL CANCER
     Dosage: ON DAY 1 OF CYCLE; RECENT INF 0N 3JUN09
     Route: 042
     Dates: start: 20090603
  3. XELODA [Suspect]
     Indication: GASTROOESOPHAGEAL CANCER
     Dosage: ON DAY 1-15; RECENT INF AND INTERRUPTED ON 16JUN09; TAB;
     Route: 048
     Dates: start: 20090603

REACTIONS (7)
  - DIARRHOEA [None]
  - ENTEROCOLITIS BACTERIAL [None]
  - FEBRILE NEUTROPENIA [None]
  - LEUKOPENIA [None]
  - RENAL FAILURE [None]
  - RESPIRATORY FAILURE [None]
  - VOMITING [None]
